FAERS Safety Report 13857521 (Version 3)
Quarter: 2017Q3

REPORT INFORMATION
  Report Type: Report from Study
  Country: JP (occurrence: JP)
  Receive Date: 20170811
  Receipt Date: 20170826
  Transmission Date: 20171127
  Serious: Yes (Other)
  Sender: FDA-Public Use
  Company Number: JP-ROCHE-1975330

PATIENT
  Sex: Female

DRUGS (3)
  1. BEVACIZUMAB. [Suspect]
     Active Substance: BEVACIZUMAB
     Indication: OVARIAN CLEAR CELL CARCINOMA
     Dosage: DAY 1 OF 28 DAYS CYCLE
     Route: 042
  2. CISPLATIN. [Suspect]
     Active Substance: CISPLATIN
     Indication: OVARIAN CLEAR CELL CARCINOMA
     Dosage: DAY 1, 15 OF 28 DAYS CYCLE
     Route: 042
  3. GEMCITABINE [Suspect]
     Active Substance: GEMCITABINE\GEMCITABINE HYDROCHLORIDE
     Indication: OVARIAN CLEAR CELL CARCINOMA
     Dosage: DAY 1, 15 OF 28 DAYS CYCLE
     Route: 042

REACTIONS (3)
  - Gamma-glutamyltransferase increased [Unknown]
  - Anaemia [Unknown]
  - Nausea [Unknown]
